FAERS Safety Report 7222231 (Version 5)
Quarter: 2013Q2

REPORT INFORMATION
  Report Type: Spontaneous
  Country: GB (occurrence: None)
  Receive Date: 20091202
  Receipt Date: 20130522
  Transmission Date: 20140414
  Serious: Yes (Death, Hospitalization, Disabling, Other)
  Sender: FDA-Public Use
  Company Number: TPA2009A03905

PATIENT
  Age: 58 Year
  Sex: Male

DRUGS (3)
  1. PIOGLITAZONE HYDROCHLORIDE [Suspect]
     Indication: TYPE 2 DIABETES MELLITUS
     Route: 048
     Dates: start: 20091014, end: 20091111
  2. METFORMIN HYDROCHLORIDE [Suspect]
     Indication: TYPE 2 DIABETES MELLITUS
     Route: 048
  3. GLIMEPIRIDE [Suspect]
     Indication: TYPE 2 DIABETES MELLITUS
     Route: 048
     Dates: start: 20090806, end: 2009

REACTIONS (6)
  - HEPATOCELLULAR INJURY [None]
  - HEPATIC STEATOSIS [None]
  - BILIARY DILATATION [None]
  - CHOLANGITIS [None]
  - BILE DUCT CANCER [None]
  - ADENOCARCINOMA PANCREAS [None]
